FAERS Safety Report 8425634-9 (Version None)
Quarter: 2012Q2

REPORT INFORMATION
  Report Type: 
  Country: None (occurrence: None)
  Receive Date: 20120611
  Receipt Date: 20120604
  Transmission Date: 20120825
  Serious: Yes (Hospitalization)
  Sender: FDA-Public Use
  Company Number: PHHY2012AU047499

PATIENT
  Sex: Female

DRUGS (2)
  1. CLOZARIL [Suspect]
     Dosage: 600 MG, UNK
     Dates: start: 20001101
  2. CLOZARIL [Suspect]
     Dosage: 700 MG, UNK
     Dates: start: 20001101

REACTIONS (1)
  - SCHIZOPHRENIA [None]
